FAERS Safety Report 4840238-2 (Version None)
Quarter: 2005Q4

REPORT INFORMATION
  Report Type: 
  Country: None (occurrence: None)
  Receive Date: 20051129
  Receipt Date: 20050929
  Transmission Date: 20060501
  Serious: Yes (Hospitalization, Other)
  Sender: FDA-Public Use
  Company Number: US-MERCK-0510USA00056

PATIENT
  Age: 86 Year
  Sex: Female
  Weight: 95 kg

DRUGS (2)
  1. VIOXX [Suspect]
     Indication: INFLAMMATION
     Route: 048
     Dates: start: 20011001, end: 20040401
  2. VIOXX [Suspect]
     Route: 048
     Dates: start: 20011001, end: 20040401

REACTIONS (2)
  - ADVERSE EVENT [None]
  - ISCHAEMIC STROKE [None]
